FAERS Safety Report 6098087-6 (Version None)
Quarter: 2009Q1

REPORT INFORMATION
  Report Type: 
  Country: None (occurrence: None)
  Receive Date: 20090227
  Receipt Date: 20080229
  Transmission Date: 20090719
  Serious: Yes (Life-Threatening, Hospitalization, Congenital Anomaly)
  Sender: FDA-Public Use
  Company Number: US-RB-000233-08

PATIENT
  Sex: Male

DRUGS (2)
  1. SUBUTEX [Suspect]
     Route: 064
     Dates: start: 20070309, end: 20071203
  2. SUBOXONE [Suspect]
     Route: 064
     Dates: start: 20070301, end: 20070308

REACTIONS (4)
  - ATRIAL SEPTAL DEFECT [None]
  - CONGENITAL AORTIC ANOMALY [None]
  - DRUG EXPOSURE DURING PREGNANCY [None]
  - PULMONARY ARTERY STENOSIS CONGENITAL [None]
